FAERS Safety Report 7657162-2 (Version None)
Quarter: 2011Q3

REPORT INFORMATION
  Report Type: 
  Country: None (occurrence: None)
  Receive Date: 20110804
  Receipt Date: 20110719
  Transmission Date: 20111222
  Serious: Yes (Hospitalization, Other)
  Sender: FDA-Public Use
  Company Number: PHHY2011BR66317

PATIENT
  Sex: Male

DRUGS (2)
  1. GALVUS MET COMBIPACK [Suspect]
     Indication: HYPERTENSION
     Dosage: 3 DF, A DAY
     Route: 048
  2. DIOVAN HCT [Suspect]
     Indication: HYPERTENSION
     Dosage: 2 DF, A DAY (80/12.5 MG)
     Route: 048

REACTIONS (6)
  - BLOOD PRESSURE FLUCTUATION [None]
  - CEREBROVASCULAR ACCIDENT [None]
  - ISCHAEMIA [None]
  - HYPOAESTHESIA [None]
  - DYSKINESIA [None]
  - THYROID DISORDER [None]
